FAERS Safety Report 5825478-8 (Version None)
Quarter: 2008Q3

REPORT INFORMATION
  Report Type: 
  Country: None (occurrence: None)
  Receive Date: 20080725
  Receipt Date: 20080725
  Transmission Date: 20090109
  Serious: Yes (Hospitalization)
  Sender: FDA-Public Use
  Company Number: None

PATIENT
  Age: 72 Year
  Sex: Male
  Weight: 76 kg

DRUGS (1)
  1. OCTAGAM [Suspect]
     Indication: VON WILLEBRAND'S DISEASE
     Dosage: 75 GRAMS 1 TIME IV DRIP, HOURS
     Route: 041
     Dates: start: 20080723, end: 20080723

REACTIONS (7)
  - AGGRESSION [None]
  - BACK PAIN [None]
  - CONVULSION [None]
  - PAIN [None]
  - POSTICTAL STATE [None]
  - TONGUE INJURY [None]
  - URINARY INCONTINENCE [None]
